FAERS Safety Report 14447209 (Version 3)
Quarter: 2018Q1

REPORT INFORMATION
  Report Type: Spontaneous
  Country: US (occurrence: US)
  Receive Date: 20180126
  Receipt Date: 20180228
  Transmission Date: 20180509
  Serious: Yes (Death, Hospitalization, Other)
  Sender: FDA-Public Use
  Company Number: US-SAOL THERAPEUTICS-2018SAO00094

PATIENT
  Age: 52 Year
  Sex: Female
  Weight: 60 kg

DRUGS (3)
  1. BACLOFEN. [Suspect]
     Active Substance: BACLOFEN
     Indication: MUSCLE SPASTICITY
     Route: 037
  2. MORPHINE [Suspect]
     Active Substance: MORPHINE
     Route: 037
  3. BACLOFEN. [Suspect]
     Active Substance: BACLOFEN
     Indication: MUSCLE SPASTICITY

REACTIONS (12)
  - Septic shock [Unknown]
  - Shock [Fatal]
  - Pneumonia [Fatal]
  - Staphylococcal infection [Unknown]
  - Unresponsive to stimuli [Unknown]
  - Sepsis [Fatal]
  - Hypotension [Unknown]
  - Overdose [Unknown]
  - Dyspnoea [Unknown]
  - Lactic acidosis [Unknown]
  - Mental status changes [Unknown]
  - Urinary tract infection [Unknown]

NARRATIVE: CASE EVENT DATE: 201801
